FAERS Safety Report 7792226-4 (Version None)
Quarter: 2011Q4

REPORT INFORMATION
  Report Type: 
  Country: None (occurrence: None)
  Receive Date: 20111003
  Receipt Date: 20111003
  Transmission Date: 20120403
  Serious: Yes (Other)
  Sender: FDA-Public Use
  Company Number: None

PATIENT
  Age: 33 Year
  Sex: Female
  Weight: 90.718 kg

DRUGS (1)
  1. SERTRALINE HYDROCHLORIDE [Suspect]
     Indication: GENERALISED ANXIETY DISORDER
     Dosage: 150MG
     Route: 048
     Dates: start: 20101101, end: 20110801

REACTIONS (12)
  - PSYCHOTIC DISORDER [None]
  - FALL [None]
  - CONFUSIONAL STATE [None]
  - LETHARGY [None]
  - WITHDRAWAL SYNDROME [None]
  - SYNCOPE [None]
  - DRUG DEPENDENCE [None]
  - DRUG DOSE OMISSION [None]
  - LOSS OF CONSCIOUSNESS [None]
  - PARAESTHESIA [None]
  - NERVE INJURY [None]
  - FEAR [None]
